FAERS Safety Report 5160476-1 (Version None)
Quarter: 2006Q4

REPORT INFORMATION
  Report Type: 
  Country: None (occurrence: None)
  Receive Date: 20061120
  Receipt Date: 20061106
  Transmission Date: 20070319
  Serious: Yes (Life-Threatening)
  Sender: FDA-Public Use
  Company Number: T200601284

PATIENT
  Age: 55 Year
  Sex: Female
  Weight: 64.4 kg

DRUGS (17)
  1. OXYCODONE                (OXYCODONDE HCL) [Suspect]
     Indication: PAIN
     Dosage: 60 MG, QD, ORAL
     Route: 048
     Dates: start: 20060411
  2. CEP-25608   ORAVESCENT FENTANYL CITRATE [Suspect]
     Indication: BREAKTHROUGH PAIN
     Dosage: 800 UG, PM, BUCCAL
     Route: 002
     Dates: start: 20051122, end: 20060903
  3. CYCLOBENZAPRINE HCL [Suspect]
     Indication: MIGRAINE
     Dosage: 10 MG, PRN, ORAL
     Route: 048
     Dates: start: 20051206
  4. OXYCODONE/ACETAMINOPHEN [Concomitant]
  5. ATENOLOL [Concomitant]
  6. FUROSEMIDE [Concomitant]
  7. POTASSIUM CHLORIDE [Concomitant]
  8. ESTROGENS CONJUGATED [Concomitant]
  9. TEMAZEPAM [Concomitant]
  10. CLONAZEPAM [Concomitant]
  11. BUTALBITAL, ACETAMINOPHEN, CAFFEINE [Concomitant]
  12. PROMETHAZINE [Concomitant]
  13. NORTRIPTYLINE HCL [Concomitant]
  14. ASPIRIN W/DIPYRIDAMOLE (ACETYLSALICYLIC ACID, DIPYRIDAMOLE) [Concomitant]
  15. VITAMINS [Concomitant]
  16. RANITIDINE [Concomitant]
  17. PREGABALIN [Concomitant]

REACTIONS (9)
  - ACCIDENTAL OVERDOSE [None]
  - AMNESIA [None]
  - ATRIOVENTRICULAR BLOCK FIRST DEGREE [None]
  - BLOOD PRESSURE SYSTOLIC INCREASED [None]
  - DEPRESSED LEVEL OF CONSCIOUSNESS [None]
  - FALL [None]
  - LOSS OF CONSCIOUSNESS [None]
  - PUPIL FIXED [None]
  - RESPIRATORY ARREST [None]
